FAERS Safety Report 8953702 (Version 2)
Quarter: 2014Q1

REPORT INFORMATION
  Report Type: Spontaneous
  Country: CA (occurrence: CA)
  Receive Date: 20121206
  Receipt Date: 20140305
  Transmission Date: 20141002
  Serious: Yes (Other)
  Sender: FDA-Public Use
  Company Number: CA-GILEAD-2012-0065703

PATIENT
  Age: 88 Year
  Sex: Male

DRUGS (9)
  1. AMBRISENTAN [Suspect]
     Indication: PULMONARY ARTERIAL HYPERTENSION
     Dosage: 5 MG, QD
     Route: 048
     Dates: start: 20121026
  2. RAMIPRIL [Concomitant]
  3. L-THYROXINE                        /00068001/ [Concomitant]
  4. LIPITOR [Concomitant]
  5. PANTOPRAZOLE [Concomitant]
  6. AMIODARONE [Concomitant]
  7. LUCENTIS [Concomitant]
  8. VITALUX                            /00322001/ [Concomitant]
  9. PRADAXA [Concomitant]

REACTIONS (8)
  - Benign neoplasm [Not Recovered/Not Resolved]
  - Blister [Not Recovered/Not Resolved]
  - Skin tightness [Not Recovered/Not Resolved]
  - Blood urine present [Not Recovered/Not Resolved]
  - Lesion excision [Recovered/Resolved]
  - Wound secretion [Not Recovered/Not Resolved]
  - Joint swelling [Not Recovered/Not Resolved]
  - Local swelling [Not Recovered/Not Resolved]
